FAERS Safety Report 18931431 (Version 1)
Quarter: 2021Q1

REPORT INFORMATION
  Report Type: Spontaneous
  Country: FR (occurrence: FR)
  Receive Date: 20210224
  Receipt Date: 20210224
  Transmission Date: 20210420
  Serious: Yes (Death, Life-Threatening, Other)
  Sender: FDA-Public Use
  Company Number: FR-ALVOGEN-2021-ALVOGEN-116580

PATIENT
  Age: 58 Year
  Sex: Male
  Weight: 56 kg

DRUGS (3)
  1. BROMAZEPAM [Concomitant]
     Active Substance: BROMAZEPAM
     Indication: PRODUCT USED FOR UNKNOWN INDICATION
     Dosage: IN THE EVENING
  2. GABAPENTIN. [Suspect]
     Active Substance: GABAPENTIN
     Indication: NEURALGIA
     Dosage: 1 TABLET OF 800 MG AND 1 CAPSULE OF 100 MG, EACH MORNING, NOON AND EVENING
  3. PARACETAMOL [Concomitant]
     Active Substance: ACETAMINOPHEN
     Indication: PRODUCT USED FOR UNKNOWN INDICATION
     Dosage: WHEN NEEDED

REACTIONS (3)
  - Intentional product misuse [Fatal]
  - Toxicity to various agents [Fatal]
  - Overdose [Fatal]
